FAERS Safety Report 5054972-5 (Version None)
Quarter: 2006Q3

REPORT INFORMATION
  Report Type: 
  Country: None (occurrence: None)
  Receive Date: 20060719
  Receipt Date: 20060717
  Transmission Date: 20061208
  Serious: Yes (Other)
  Sender: FDA-Public Use
  Company Number: US-GLAXOSMITHKLINE-A0612507A

PATIENT
  Age: 31 Year
  Sex: Male

DRUGS (8)
  1. BUPROPION HCL [Suspect]
     Indication: BIPOLAR DISORDER
     Dosage: 150MG PER DAY
     Route: 048
     Dates: start: 20060701
  2. WELLBUTRIN XL [Suspect]
     Indication: BIPOLAR DISORDER
     Route: 048
     Dates: end: 20060701
  3. LITHIUM CARBONATE [Concomitant]
  4. DEPAKOTE [Concomitant]
  5. KLONOPIN [Concomitant]
  6. ATIVAN [Concomitant]
  7. CLARITIN [Concomitant]
  8. PRILOSEC [Concomitant]

REACTIONS (1)
  - MANIA [None]
